FAERS Safety Report 5090378-0 (Version None)
Quarter: 2006Q3

REPORT INFORMATION
  Report Type: 
  Country: None (occurrence: None)
  Receive Date: 20060828
  Receipt Date: 20060816
  Transmission Date: 20061208
  Serious: Yes (Hospitalization)
  Sender: FDA-Public Use
  Company Number: 2006CG01364

PATIENT
  Age: 82 Year
  Sex: Female

DRUGS (8)
  1. TENORMIN [Suspect]
     Indication: ESSENTIAL HYPERTENSION
     Route: 048
  2. BACTRIM [Suspect]
     Route: 048
     Dates: start: 20060222, end: 20060225
  3. LASILIX [Suspect]
     Indication: ESSENTIAL HYPERTENSION
     Route: 048
  4. PREVISCAN [Suspect]
     Indication: ATRIAL FIBRILLATION
     Route: 048
     Dates: start: 20060223
  5. PREVISCAN [Suspect]
     Indication: ATRIAL FLUTTER
     Route: 048
     Dates: start: 20060223
  6. TAREG [Suspect]
     Indication: ESSENTIAL HYPERTENSION
     Route: 048
  7. ASPIRIN [Concomitant]
  8. DIGOXIN [Concomitant]

REACTIONS (5)
  - ATRIAL FIBRILLATION [None]
  - ATRIAL FLUTTER [None]
  - BLOOD CREATININE INCREASED [None]
  - RENAL FAILURE [None]
  - WEGENER'S GRANULOMATOSIS [None]
